FAERS Safety Report 10365550 (Version 1)
Quarter: 2014Q3

REPORT INFORMATION
  Report Type: Spontaneous
  Country: US (occurrence: US)
  Receive Date: 20140806
  Receipt Date: 20140806
  Transmission Date: 20150326
  Serious: No
  Sender: FDA-Public Use
  Company Number: US-009507513-1408USA002016

PATIENT
  Age: 62 Year

DRUGS (2)
  1. CLARITIN [Suspect]
     Active Substance: LORATADINE
     Dosage: 20 MG, QD
     Route: 048
     Dates: start: 20140731
  2. CLARITIN [Suspect]
     Active Substance: LORATADINE
     Indication: SEASONAL ALLERGY
     Dosage: UNK UNK, QD
     Route: 048

REACTIONS (2)
  - Accidental overdose [Unknown]
  - No adverse event [Unknown]

NARRATIVE: CASE EVENT DATE: 20140731
